FAERS Safety Report 7406500-4 (Version None)
Quarter: 2011Q2

REPORT INFORMATION
  Report Type: 
  Country: None (occurrence: None)
  Receive Date: 20110411
  Receipt Date: 20110328
  Transmission Date: 20111010
  Serious: Yes (Hospitalization)
  Sender: FDA-Public Use
  Company Number: JP-JNJFOC-20091203456

PATIENT
  Sex: Male
  Weight: 67 kg

DRUGS (6)
  1. MUCOSTA [Concomitant]
     Route: 048
  2. REMICADE [Suspect]
     Dosage: TOTAL 2 INFUSIONS
     Route: 042
  3. CELECOX [Concomitant]
     Route: 048
  4. REMICADE [Suspect]
     Indication: RHEUMATOID ARTHRITIS
     Route: 042
  5. RHEUMATREX [Concomitant]
     Indication: RHEUMATOID ARTHRITIS
     Route: 048
  6. FOLIC ACID [Concomitant]
     Route: 048

REACTIONS (1)
  - PULMONARY TUBERCULOSIS [None]
